FAERS Safety Report 10009735 (Version 2)
Quarter: 2014Q1

REPORT INFORMATION
  Report Type: Spontaneous
  Country: US (occurrence: US)
  Receive Date: 20140312
  Receipt Date: 20140312
  Transmission Date: 20141002
  Serious: Yes (Other)
  Sender: FDA-Public Use
  Company Number: US-INCYTE CORPORATION-2012IN002298

PATIENT
  Age: 70 Year
  Sex: Male
  Weight: 84.4 kg

DRUGS (7)
  1. JAKAFI [Suspect]
     Indication: MYELOFIBROSIS
     Dosage: 20 MG, BID
     Route: 048
     Dates: start: 20121031, end: 20121108
  2. JAKAFI [Suspect]
     Dosage: 10 MG, BID
     Route: 048
     Dates: start: 20121109, end: 20121115
  3. JAKAFI [Suspect]
     Dosage: 5 MG, BID
     Route: 048
     Dates: start: 20121126
  4. ALLOPURINOL [Concomitant]
     Dosage: 100 MG, QD
  5. LISINOPRIL [Concomitant]
     Dosage: 40 MG, QD
  6. AMLODIPINE [Concomitant]
     Dosage: 10 MG, QD
  7. MVI [Concomitant]
     Dosage: UNK, QD

REACTIONS (2)
  - Haemoglobin decreased [Recovering/Resolving]
  - Platelet count decreased [Recovering/Resolving]
